FAERS Safety Report 4822241-1 (Version None)
Quarter: 2005Q4

REPORT INFORMATION
  Report Type: 
  Country: None (occurrence: None)
  Receive Date: 20051103
  Receipt Date: 20051028
  Transmission Date: 20060501
  Serious: Yes (Life-Threatening, Hospitalization)
  Sender: FDA-Public Use
  Company Number: TPA2005A01134

PATIENT
  Age: 75 Year
  Sex: Female
  Weight: 69.8539 kg

DRUGS (6)
  1. ACTOS [Suspect]
     Indication: DIABETES MELLITUS NON-INSULIN-DEPENDENT
     Dosage: SEE IMAGE
     Route: 048
     Dates: start: 20050331, end: 20050415
  2. ACTOS [Suspect]
     Indication: DIABETES MELLITUS NON-INSULIN-DEPENDENT
     Dosage: SEE IMAGE
     Route: 048
     Dates: start: 20050415, end: 20050610
  3. HUMULIN 70/30 [Concomitant]
  4. FOSAMAX (ALENDRONATE SODIUM) (70 MILLIGRAM) [Concomitant]
  5. DIOVAN (VALSARTAN) (160 MILLIGRAM) [Concomitant]
  6. PRAVACHOL (PRAVASTATIN SODIUM) (20 MILLIGRAM) [Concomitant]

REACTIONS (1)
  - CARDIAC FAILURE [None]
